FAERS Safety Report 6167413-1 (Version None)
Quarter: 2009Q2

REPORT INFORMATION
  Report Type: 
  Country: None (occurrence: None)
  Receive Date: 20090424
  Receipt Date: 20090416
  Transmission Date: 20091009
  Serious: Yes (Death, Hospitalization)
  Sender: FDA-Public Use
  Company Number: PHHY2009JP15188

PATIENT
  Age: 16 Year
  Sex: Male

DRUGS (21)
  1. SANDIMMUNE [Suspect]
     Route: 041
  2. AMBISOME [Suspect]
     Indication: TRICHOSPORON INFECTION
     Dosage: 125 MG, QD
     Route: 041
     Dates: start: 20070718, end: 20070721
  3. AMBISOME [Suspect]
     Dosage: 80 MG, QD
     Route: 041
     Dates: start: 20070722, end: 20070722
  4. FUNGUARD [Concomitant]
     Dosage: 50 MG, QD
     Route: 041
     Dates: end: 20070720
  5. GRAN [Concomitant]
     Dosage: 450 UG, QD
     Dates: end: 20070720
  6. ZOVIRAX [Concomitant]
     Dosage: 500 MG, QD
     Route: 041
  7. TARGOCID [Concomitant]
     Route: 041
  8. LASIX [Concomitant]
     Dosage: 4 MG, QD
  9. SERENACE [Concomitant]
     Dosage: 5 MG, QD
  10. FINIBAX [Concomitant]
     Dosage: 0.75 MG, QD
  11. GASTER [Concomitant]
     Dosage: 20 MG, QD
     Route: 042
  12. PRIMPERAN [Concomitant]
     Dosage: 10 MG, QD
  13. POTASSIUM CHLORIDE [Concomitant]
     Dosage: 20 MEQ, QD
  14. RED BLOOD CELLS [Concomitant]
     Dosage: 1 U, QD
     Route: 041
  15. PLATELETS [Concomitant]
     Dosage: 10 IU, QD
  16. FRESH FROZEN PLASMA [Concomitant]
     Dosage: 5 IU, QD
     Route: 041
  17. PRODIF [Concomitant]
     Dosage: 800 MG, QD
     Route: 042
     Dates: start: 20070711, end: 20070712
  18. PRODIF [Concomitant]
     Dosage: 400 MG, QD
     Route: 042
     Dates: start: 20070713, end: 20070717
  19. CONCLYTE-MG [Concomitant]
     Dosage: 20 MEQ, QD
     Route: 041
     Dates: start: 20070718
  20. SOLDACTONE [Concomitant]
     Dosage: UNK
     Route: 042
     Dates: start: 20070719
  21. PENTAZOCINE LACTATE [Concomitant]
     Dosage: 15 MG, QD
     Dates: start: 20070721, end: 20070721

REACTIONS (3)
  - FUNGAL INFECTION [None]
  - HEPATIC FUNCTION ABNORMAL [None]
  - RENAL IMPAIRMENT [None]
